FAERS Safety Report 4425306-1 (Version None)
Quarter: 2004Q3

REPORT INFORMATION
  Report Type: 
  Country: None (occurrence: None)
  Receive Date: 20040812
  Receipt Date: 20040812
  Transmission Date: 20050211
  Serious: No
  Sender: FDA-Public Use
  Company Number: None

PATIENT
  Age: 3 Year
  Sex: Male

DRUGS (1)
  1. CEFTRIAXONE [Suspect]
     Dates: start: 20040803

REACTIONS (2)
  - PRURITUS [None]
  - URTICARIA [None]
